FAERS Safety Report 9337011 (Version 1)
Quarter: 2013Q2

REPORT INFORMATION
  Report Type: Spontaneous
  Country: IT (occurrence: IT)
  Receive Date: 20130607
  Receipt Date: 20130607
  Transmission Date: 20140414
  Serious: Yes (Hospitalization)
  Sender: FDA-Public Use
  Company Number: IT-ROCHE-1234047

PATIENT
  Age: 69 Year
  Sex: Female

DRUGS (4)
  1. LUCENTIS [Suspect]
     Indication: MACULOPATHY
     Route: 050
     Dates: start: 20120222
  2. LUCENTIS [Suspect]
     Indication: OFF LABEL USE
     Route: 050
     Dates: start: 20120524, end: 20120524
  3. AVASTIN [Suspect]
     Indication: MACULOPATHY
     Route: 031
     Dates: start: 20111005, end: 20120110
  4. AVASTIN [Suspect]
     Indication: OFF LABEL USE

REACTIONS (1)
  - Acute coronary syndrome [Recovered/Resolved]
